FAERS Safety Report 9458821 (Version 2)
Quarter: 2013Q3

REPORT INFORMATION
  Report Type: Spontaneous
  Country: JP (occurrence: JP)
  Receive Date: 20130814
  Receipt Date: 20130903
  Transmission Date: 20140515
  Serious: Yes (Hospitalization, Other)
  Sender: FDA-Public Use
  Company Number: PHHY2013JP085536

PATIENT
  Age: 14 Year
  Sex: Female

DRUGS (7)
  1. NEORAL [Suspect]
     Indication: NEPHROTIC SYNDROME
     Dosage: 120 MG, UNK
     Route: 048
     Dates: start: 200610
  2. NEORAL [Suspect]
     Dosage: 03 AND 05 MG/KG ON AN AS-NEEDED BASIS
     Route: 048
  3. NEORAL [Suspect]
     Dosage: 120 MG, UNK
     Route: 048
     Dates: start: 201304
  4. PREDNISOLONE [Suspect]
     Route: 048
  5. CORTICOSTEROIDS [Suspect]
  6. CYCLOPHOSPHAMIDE HYDRATE [Concomitant]
     Route: 042
     Dates: start: 200701
  7. MIZORIBINE [Concomitant]

REACTIONS (6)
  - Basal ganglia infarction [Recovering/Resolving]
  - Spinal compression fracture [Recovering/Resolving]
  - Nephropathy toxic [Recovering/Resolving]
  - Nephrotic syndrome [Unknown]
  - Disease recurrence [Recovering/Resolving]
  - Drug ineffective [Unknown]
